FAERS Safety Report 7130165-2 (Version None)
Quarter: 2010Q4

REPORT INFORMATION
  Report Type: 
  Country: None (occurrence: None)
  Receive Date: 20101112
  Receipt Date: 20101021
  Transmission Date: 20110411
  Serious: Yes (Death)
  Sender: FDA-Public Use
  Company Number: 2010EU005582

PATIENT
  Age: 49 Year
  Sex: Male

DRUGS (4)
  1. TACROLIMUS SYSTEMIC (TACROLIMUS) FORMULATION UNKNOWN [Suspect]
     Indication: RENAL TRANSPLANT
     Dates: end: 20080101
  2. MYCOPHENOLATE MOFETIL [Suspect]
     Indication: RENAL TRANSPLANT
  3. PREDNISOLONE [Suspect]
     Indication: RENAL TRANSPLANT
  4. COTRIM [Concomitant]

REACTIONS (4)
  - CEREBRAL TOXOPLASMOSIS [None]
  - DECREASED APPETITE [None]
  - LETHARGY [None]
  - PNEUMONIA ASPIRATION [None]
